FAERS Safety Report 8415954-6 (Version None)
Quarter: 2012Q2

REPORT INFORMATION
  Report Type: 
  Country: None (occurrence: None)
  Receive Date: 20120606
  Receipt Date: 20120522
  Transmission Date: 20120825
  Serious: Yes (Other)
  Sender: FDA-Public Use
  Company Number: TW-ROCHE-1071056

PATIENT
  Age: 45 Year
  Sex: Female

DRUGS (8)
  1. XELODA [Suspect]
     Indication: BREAST CANCER METASTATIC
     Dates: start: 20100302, end: 20100720
  2. TAXOTERE [Suspect]
     Dates: start: 20090929, end: 20091201
  3. HERCEPTIN [Suspect]
     Dates: start: 20090608, end: 20090908
  4. HERCEPTIN [Suspect]
     Dates: start: 20090929, end: 20100708
  5. NAVELBINE [Suspect]
     Route: 048
     Dates: start: 20091229, end: 20100209
  6. TAXOTERE [Suspect]
     Indication: BREAST CANCER METASTATIC
     Dates: start: 20090601, end: 20090727
  7. HERCEPTIN [Suspect]
     Indication: BREAST CANCER METASTATIC
     Dates: start: 20090601, end: 20090601
  8. NAVELBINE [Suspect]
     Indication: BREAST CANCER METASTATIC
     Route: 048
     Dates: start: 20091221, end: 20091221

REACTIONS (3)
  - METASTASES TO BONE [None]
  - METASTASES TO CENTRAL NERVOUS SYSTEM [None]
  - PLEURAL EFFUSION [None]
